FAERS Safety Report 9981290 (Version 1)
Quarter: 2014Q1

REPORT INFORMATION
  Report Type: Spontaneous
  Country: US (occurrence: US)
  Receive Date: 20140307
  Receipt Date: 20140307
  Transmission Date: 20141002
  Serious: Yes (Hospitalization)
  Sender: FDA-Public Use
  Company Number: US-ASTRAZENECA-2014SE14654

PATIENT
  Sex: Male

DRUGS (3)
  1. BRILINTA [Suspect]
     Route: 048
  2. COUMADIN [Concomitant]
     Dosage: UNKNOWN UNK
  3. MULTIPLE OTHER MEDICATIONS [Concomitant]
     Dosage: UNKNOWN UNK

REACTIONS (2)
  - Arrhythmia [Unknown]
  - Platelet count decreased [Unknown]
